FAERS Safety Report 13713489 (Version 1)
Quarter: 2017Q3

REPORT INFORMATION
  Report Type: Spontaneous
  Country: SK (occurrence: SK)
  Receive Date: 20170704
  Receipt Date: 20170704
  Transmission Date: 20171127
  Serious: Yes (Other)
  Sender: FDA-Public Use
  Company Number: SK-SUN PHARMACEUTICAL INDUSTRIES LTD-2017RR-144384

PATIENT
  Age: 23 Year
  Sex: Female
  Weight: 60 kg

DRUGS (16)
  1. AMOXICILLIN/CLAVULANIC ACID [Suspect]
     Active Substance: AMOXICILLIN\CLAVULANIC ACID
     Indication: BACTERIAL INFECTION
     Dosage: 2.0 G, DAILY
     Route: 065
  2. METRONIDAZOLE. [Suspect]
     Active Substance: METRONIDAZOLE
     Indication: ACNE CONGLOBATA
     Route: 065
  3. FRAXIPARINE [Suspect]
     Active Substance: NADROPARIN CALCIUM
     Indication: THROMBOPHLEBITIS
     Route: 065
  4. DAPSONE. [Suspect]
     Active Substance: DAPSONE
     Indication: HIDRADENITIS
     Dosage: 100 MG, DAILY
     Route: 065
  5. METHYLPREDNISOLONE. [Suspect]
     Active Substance: METHYLPREDNISOLONE
     Indication: ACNE CONGLOBATA
  6. CIPROFLOXACIN. [Suspect]
     Active Substance: CIPROFLOXACIN
     Indication: BACTERIAL INFECTION
     Dosage: 1 G, DAILY
     Route: 065
  7. MEBENDAZOLE. [Suspect]
     Active Substance: MEBENDAZOLE
     Indication: BACTERIAL INFECTION
     Route: 065
  8. ISOTRETINOID [Suspect]
     Active Substance: ISOTRETINOIN
     Indication: ACNE CONGLOBATA
  9. DAPSONE. [Suspect]
     Active Substance: DAPSONE
     Indication: ACNE CONGLOBATA
  10. RIMETOPRIM/SULFONAMIDE [Suspect]
     Active Substance: SULFAMETHOXAZOLE\TRIMETHOPRIM
     Indication: BACTERIAL INFECTION
     Dosage: 2 TBL 480MG 2X PER DAY
     Route: 065
  11. FLUCONAZOLE. [Suspect]
     Active Substance: FLUCONAZOLE
     Indication: BACTERIAL INFECTION
     Dosage: 50 MG PER DAY FOR 7 DAYS AND SUBSEQUENTLY 150 MG 1X PER WEEK
     Route: 065
  12. ISOTRETINOID [Suspect]
     Active Substance: ISOTRETINOIN
     Indication: HIDRADENITIS
     Dosage: 0.75 MG/KG
     Route: 065
  13. METHYLPREDNISOLONE. [Suspect]
     Active Substance: METHYLPREDNISOLONE
     Indication: HIDRADENITIS
     Dosage: 0.5 MG/KG, DAILY
     Route: 065
  14. METRONIDAZOLE. [Suspect]
     Active Substance: METRONIDAZOLE
     Indication: HIDRADENITIS
  15. CLINDAMYCIN. [Suspect]
     Active Substance: CLINDAMYCIN
     Indication: BACTERIAL INFECTION
     Dosage: 900 MG, DAILY
     Route: 065
  16. RIFAMPICIN [Suspect]
     Active Substance: RIFAMPIN
     Indication: BACTERIAL INFECTION
     Route: 065

REACTIONS (1)
  - Drug resistance [Not Recovered/Not Resolved]
